FAERS Safety Report 16714953 (Version 1)
Quarter: 2019Q3

REPORT INFORMATION
  Report Type: Spontaneous
  Country: US (occurrence: US)
  Receive Date: 20190819
  Receipt Date: 20190819
  Transmission Date: 20191005
  Serious: No
  Sender: FDA-Public Use
  Company Number: PHEH2019US033404

PATIENT
  Age: 51 Year
  Sex: Female

DRUGS (1)
  1. MAYZENT [Suspect]
     Active Substance: SIPONIMOD
     Indication: SECONDARY PROGRESSIVE MULTIPLE SCLEROSIS
     Dosage: 2 MG, QD
     Route: 048
     Dates: start: 20190724

REACTIONS (3)
  - Dizziness [Recovered/Resolved]
  - Gait disturbance [Recovered/Resolved]
  - Menstrual disorder [Not Recovered/Not Resolved]

NARRATIVE: CASE EVENT DATE: 20190724
